FAERS Safety Report 5083883-4 (Version None)
Quarter: 2006Q3

REPORT INFORMATION
  Report Type: 
  Country: None (occurrence: None)
  Receive Date: 20060727
  Receipt Date: 20060603
  Transmission Date: 20061208
  Serious: Yes (Other)
  Sender: FDA-Public Use
  Company Number: 2006054922

PATIENT
  Sex: Male

DRUGS (9)
  1. LYRICA [Suspect]
     Indication: NEUROPATHY
     Dosage: 150 MG
     Dates: end: 20060420
  2. LIPITOR [Suspect]
     Indication: DRUG USE FOR UNKNOWN INDICATION
     Dosage: 10 MG
     Dates: start: 20060210
  3. BENADRYL [Suspect]
     Indication: RASH
  4. CARBAMAZEPINE [Concomitant]
  5. INDAPAMIDE [Concomitant]
  6. LISINOPRIL [Concomitant]
  7. METFORMIN HCL [Concomitant]
  8. METOPROLOL (METOPROLOL) [Concomitant]
  9. POTASSIUM (POTASSIUM) [Concomitant]

REACTIONS (7)
  - BLOOD GLUCOSE FLUCTUATION [None]
  - BLOOD GLUCOSE INCREASED [None]
  - HYPERKERATOSIS [None]
  - ONYCHOMYCOSIS [None]
  - PAIN [None]
  - RASH [None]
  - SEXUAL DYSFUNCTION [None]
